FAERS Safety Report 9685189 (Version 1)
Quarter: 2013Q4

REPORT INFORMATION
  Report Type: Spontaneous
  Country: US (occurrence: None)
  Receive Date: 20131112
  Receipt Date: 20131112
  Transmission Date: 20140711
  Serious: Yes (Disabling)
  Sender: FDA-Public Use
  Company Number: None

PATIENT
  Age: 50 Year
  Sex: Female
  Weight: 61.24 kg

DRUGS (2)
  1. HYDROCODONE + ACETAMINOPHEN [Suspect]
     Indication: PAIN
     Dates: start: 20081101, end: 20131101
  2. HYDROCODONE + ACETAMINOPHEN [Suspect]
     Indication: SYSTEMIC LUPUS ERYTHEMATOSUS
     Dates: start: 20081101, end: 20131101

REACTIONS (2)
  - Hypophagia [None]
  - Haematemesis [None]
